FAERS Safety Report 17932298 (Version 14)
Quarter: 2025Q2

REPORT INFORMATION
  Report Type: Spontaneous
  Country: US (occurrence: US)
  Receive Date: 20200623
  Receipt Date: 20250630
  Transmission Date: 20250717
  Serious: Yes (Other)
  Sender: PFIZER
  Company Number: US-PFIZER INC-2020241786

PATIENT
  Age: 68 Year
  Sex: Female
  Weight: 82.6 kg

DRUGS (3)
  1. IBRANCE [Suspect]
     Active Substance: PALBOCICLIB
     Indication: Breast cancer female
     Dates: start: 20200423, end: 2020
  2. IBRANCE [Suspect]
     Active Substance: PALBOCICLIB
     Dates: start: 20200506, end: 2020
  3. IBRANCE [Suspect]
     Active Substance: PALBOCICLIB
     Route: 048
     Dates: start: 20200601

REACTIONS (9)
  - Rash [Unknown]
  - Pruritus [Unknown]
  - Diarrhoea [Unknown]
  - Stomatitis [Unknown]
  - Fatigue [Unknown]
  - White blood cell count decreased [Unknown]
  - Rhinorrhoea [Unknown]
  - Vision blurred [Unknown]
  - Cough [Recovering/Resolving]

NARRATIVE: CASE EVENT DATE: 20200101
